FAERS Safety Report 18917556 (Version 1)
Quarter: 2021Q1

REPORT INFORMATION
  Report Type: Spontaneous
  Country: US (occurrence: US)
  Receive Date: 20210219
  Receipt Date: 20210219
  Transmission Date: 20210420
  Serious: No
  Sender: FDA-Public Use
  Company Number: US-PFIZER INC-2021159914

PATIENT
  Age: 71 Year
  Sex: Male

DRUGS (4)
  1. NARDIL [Suspect]
     Active Substance: PHENELZINE SULFATE
     Indication: DEPRESSION
     Dosage: 15 MG
     Dates: start: 1981
  2. PHENELZINE SULFATE. [Suspect]
     Active Substance: PHENELZINE SULFATE
     Indication: DEPRESSION
     Dosage: UNK
  3. NARDIL [Suspect]
     Active Substance: PHENELZINE SULFATE
     Indication: ANXIETY DISORDER
  4. PHENELZINE SULFATE. [Suspect]
     Active Substance: PHENELZINE SULFATE
     Indication: ANXIETY DISORDER

REACTIONS (1)
  - Drug ineffective [Unknown]
